FAERS Safety Report 6243958-0 (Version None)
Quarter: 2009Q2

REPORT INFORMATION
  Report Type: 
  Country: None (occurrence: None)
  Receive Date: 20090623
  Receipt Date: 20090609
  Transmission Date: 20091009
  Serious: Yes (Other)
  Sender: FDA-Public Use
  Company Number: TRP_06278_2009

PATIENT
  Age: 52 Year
  Sex: Male

DRUGS (3)
  1. RIBAVIRIN [Suspect]
     Indication: HEPATITIS C
     Dosage: DF
     Dates: start: 20020301
  2. PEG-INTRON [Suspect]
     Indication: HEPATITIS C
     Dosage: DF; REDUCED BY HALF APPROXIMATELY WEEK 20; FUSE DOSE RESUMED WEEK 22
     Dates: start: 20020301
  3. QUETIAPINE FUMARATE [Concomitant]

REACTIONS (4)
  - ABNORMAL BEHAVIOUR [None]
  - DEPRESSION [None]
  - INSOMNIA [None]
  - TACHYPHRENIA [None]
